FAERS Safety Report 20418486 (Version 1)
Quarter: 2022Q1

REPORT INFORMATION
  Report Type: Other
  Country: ID (occurrence: ID)
  Receive Date: 20220202
  Receipt Date: 20220202
  Transmission Date: 20220423
  Serious: Yes (Death, Other)
  Sender: FDA-Public Use
  Company Number: ID-BoehringerIngelheim-2022-BI-150474

PATIENT
  Age: 58 Year
  Sex: Female

DRUGS (7)
  1. ALTEPLASE [Suspect]
     Active Substance: ALTEPLASE
     Indication: Ischaemic stroke
     Route: 042
  2. CEFTRIAXONE [Concomitant]
     Active Substance: CEFTRIAXONE
     Indication: Antibiotic therapy
  3. FAVIPIRAVIR [Concomitant]
     Active Substance: FAVIPIRAVIR
     Indication: Product used for unknown indication
  4. LEVOFLOXACIN [Concomitant]
     Active Substance: LEVOFLOXACIN
     Indication: Antibiotic therapy
  5. ENOXAPARIN [Concomitant]
     Active Substance: ENOXAPARIN
     Indication: Product used for unknown indication
  6. AMLODIPINE [Concomitant]
     Active Substance: AMLODIPINE BESYLATE
     Indication: Hypertension
  7. NICARDIPINE [Concomitant]
     Active Substance: NICARDIPINE
     Indication: Blood pressure increased
     Dosage: FOA- DRIP

REACTIONS (2)
  - Acute respiratory distress syndrome [Fatal]
  - Intraventricular haemorrhage [Unknown]
